FAERS Safety Report 4906688-0 (Version None)
Quarter: 2006Q1

REPORT INFORMATION
  Report Type: 
  Country: None (occurrence: None)
  Receive Date: 20060206
  Receipt Date: 20060125
  Transmission Date: 20060701
  Serious: Yes (Other)
  Sender: FDA-Public Use
  Company Number: 221498

PATIENT
  Sex: Female

DRUGS (3)
  1. HERCEPTIN(TRASTUZUMAB) PWDR + SOLVENT,INFUSION SOLN, 440MG [Suspect]
     Indication: BREAST CANCER METASTATIC
     Dosage: 1/WEEK
     Dates: start: 20050601
  2. TAXOTERE [Concomitant]
  3. NAVELBINE [Concomitant]

REACTIONS (2)
  - COLORECTAL CANCER [None]
  - DISEASE PROGRESSION [None]
